FAERS Safety Report 12507813 (Version 1)
Quarter: 2016Q2

REPORT INFORMATION
  Report Type: Spontaneous
  Country: US (occurrence: None)
  Receive Date: 20160628
  Receipt Date: 20160628
  Transmission Date: 20160815
  Serious: No
  Sender: FDA-Public Use
  Company Number: None

PATIENT
  Age: 43 Year
  Sex: Female
  Weight: 74.84 kg

DRUGS (1)
  1. MONISTAT 3 [Suspect]
     Active Substance: MICONAZOLE NITRATE
     Indication: VULVOVAGINAL MYCOTIC INFECTION
     Dosage: 1 PREFILLED CREAM AP AT BEDTIME VAGINAL
     Route: 067
     Dates: start: 20160627, end: 20160627

REACTIONS (1)
  - Application site pain [None]

NARRATIVE: CASE EVENT DATE: 20160627
